FAERS Safety Report 8019834-X (Version None)
Quarter: 2011Q4

REPORT INFORMATION
  Report Type: 
  Country: None (occurrence: None)
  Receive Date: 20111229
  Receipt Date: 20111212
  Transmission Date: 20120403
  Serious: Yes (Death)
  Sender: FDA-Public Use
  Company Number: 2011-000012

PATIENT
  Age: 38 Year
  Sex: Female

DRUGS (1)
  1. ASACOL [Suspect]
     Indication: CROHN'S DISEASE
     Dosage: 1600 MG THREE TIMES DAILY, ORAL
     Route: 048
     Dates: start: 20050101

REACTIONS (2)
  - ASPHYXIA [None]
  - INJURY [None]
